FAERS Safety Report 7037313-3 (Version None)
Quarter: 2010Q4

REPORT INFORMATION
  Report Type: 
  Country: None (occurrence: None)
  Receive Date: 20101011
  Receipt Date: 20100929
  Transmission Date: 20110411
  Serious: Yes (Other)
  Sender: FDA-Public Use
  Company Number: DE-ROCHE-731611

PATIENT
  Sex: Female

DRUGS (2)
  1. XELODA [Suspect]
     Route: 065
     Dates: start: 20100924
  2. ZOMETA [Interacting]
     Route: 042

REACTIONS (5)
  - DRUG INTERACTION [None]
  - MYALGIA [None]
  - NAUSEA [None]
  - SYNCOPE [None]
  - VOMITING [None]
